FAERS Safety Report 24107770 (Version 1)
Quarter: 2024Q3

REPORT INFORMATION
  Report Type: Spontaneous
  Country: US (occurrence: US)
  Receive Date: 20240718
  Receipt Date: 20240718
  Transmission Date: 20241017
  Serious: Yes (Hospitalization)
  Sender: BOEHRINGER INGELHEIM
  Company Number: US-BoehringerIngelheim-2024-BI-039372

PATIENT
  Age: 63 Year
  Sex: Male

DRUGS (5)
  1. JARDIANCE [Suspect]
     Active Substance: EMPAGLIFLOZIN
     Indication: Product used for unknown indication
  2. ATORVASTATIN [Suspect]
     Active Substance: ATORVASTATIN
     Indication: Product used for unknown indication
  3. DUPIXENT [Suspect]
     Active Substance: DUPILUMAB
     Indication: Asthma
     Dates: start: 202307, end: 2023
  4. DUPIXENT [Suspect]
     Active Substance: DUPILUMAB
     Dates: start: 202308, end: 202308
  5. DUPIXENT [Suspect]
     Active Substance: DUPILUMAB
     Dosage: 300 MG/2ML
     Route: 058
     Dates: start: 20230913

REACTIONS (11)
  - Angina pectoris [Recovered/Resolved]
  - Nasopharyngitis [Unknown]
  - Cough [Unknown]
  - Rhinorrhoea [Unknown]
  - Dry throat [Unknown]
  - Paranasal sinus hypersecretion [Unknown]
  - Myalgia [Unknown]
  - Feeling jittery [Recovered/Resolved]
  - Initial insomnia [Unknown]
  - Rash papular [Unknown]
  - Vision blurred [Recovered/Resolved]

NARRATIVE: CASE EVENT DATE: 20231220
